FAERS Safety Report 13038110 (Version 1)
Quarter: 2016Q4

REPORT INFORMATION
  Report Type: Spontaneous
  Country: FR (occurrence: FR)
  Receive Date: 20161218
  Receipt Date: 20161218
  Transmission Date: 20170207
  Serious: Yes (Hospitalization)
  Sender: FDA-Public Use
  Company Number: FR-CONCORDIA PHARMACEUTICALS INC.-E2B_00007942

PATIENT
  Age: 21 Year
  Sex: Female

DRUGS (1)
  1. ZONEGRAN [Suspect]
     Active Substance: ZONISAMIDE
     Indication: EPILEPSY
     Route: 048
     Dates: start: 20161021, end: 201611

REACTIONS (2)
  - Aggression [Recovered/Resolved]
  - Abnormal behaviour [Recovered/Resolved]

NARRATIVE: CASE EVENT DATE: 201611
